FAERS Safety Report 15699620 (Version 1)
Quarter: 2018Q4

REPORT INFORMATION
  Report Type: Spontaneous
  Country: CA (occurrence: CA)
  Receive Date: 20181207
  Receipt Date: 20181207
  Transmission Date: 20190205
  Serious: Yes (Disabling, Other)
  Sender: FDA-Public Use
  Company Number: CA-SA-2018SA136328

PATIENT
  Age: 59 Year
  Sex: Female
  Weight: 70.03 kg

DRUGS (10)
  1. COLESEVELAM HYDROCHLORIDE. [Suspect]
     Active Substance: COLESEVELAM HYDROCHLORIDE
     Dosage: UNK UNK,UNK
     Route: 065
  2. PROBIOTIC [BIFIDOBACTERIUM LACTIS] [Concomitant]
     Indication: PRODUCT USED FOR UNKNOWN INDICATION
  3. REACTINE [CETIRIZINE HYDROCHLORIDE] [Concomitant]
     Active Substance: CETIRIZINE HYDROCHLORIDE
     Dosage: UNK UNK,UNK
     Route: 065
  4. PROBIOTIC [BIFIDOBACTERIUM LACTIS] [Concomitant]
  5. REPATHA [Suspect]
     Active Substance: EVOLOCUMAB
     Dosage: 1 ML, QOW
     Route: 058
  6. EFFEXOR [Concomitant]
     Active Substance: VENLAFAXINE HYDROCHLORIDE
     Indication: AFFECTIVE DISORDER
     Dosage: UNK UNK,UNK
     Route: 065
  7. CYANOCOBALAMIN. [Concomitant]
     Active Substance: CYANOCOBALAMIN
     Dosage: UNK UNK,UNK
     Route: 065
  8. VITAMIN B COMPLEX [Concomitant]
     Active Substance: CYANOCOBALAMIN\DEXPANTHENOL\NIACINAMIDE\PYRIDOXINE HYDROCHLORIDE\RIBOFLAVIN 5^-PHOSPHATE SODIUM\THIAMINE HYDROCHLORIDE\VITAMIN B COMPLEX
     Dosage: UNK UNK,UNK
     Route: 065
  9. VITAMIN D3 [Concomitant]
     Active Substance: CHOLECALCIFEROL
     Dosage: UNK UNK,UNK
     Route: 065
  10. DOXYCYCLINE. [Concomitant]
     Active Substance: DOXYCYCLINE
     Indication: OCULAR ROSACEA
     Dosage: UNK UNK,UNK
     Route: 065

REACTIONS (6)
  - Adverse event [Unknown]
  - Fatigue [Recovered/Resolved]
  - Oropharyngeal pain [Recovered/Resolved]
  - Sneezing [Recovered/Resolved]
  - Diverticulitis [Unknown]
  - Drug hypersensitivity [Unknown]
